FAERS Safety Report 8177911 (Version 4)
Quarter: 2012Q4

REPORT INFORMATION
  Report Type: 
  Country: US (occurrence: US)
  Receive Date: 20111012
  Receipt Date: 20121102
  Transmission Date: 20130627
  Serious: Yes (Other)
  Sender: FDA-Public Use
  Company Number: US-PFIZER INC-2011242651

PATIENT
  Sex: Female

DRUGS (2)
  1. ZOLOFT [Suspect]
     Indication: ANXIETY
     Dosage: 100 mg, 2x/day
  2. LIPITOR [Suspect]
     Dosage: 20 mg, daily

REACTIONS (4)
  - Depression [Unknown]
  - Oesophageal disorder [Unknown]
  - Sleep disorder [Unknown]
  - Anxiety [Unknown]
